FAERS Safety Report 9181845 (Version 1)
Quarter: 2013Q1

REPORT INFORMATION
  Report Type: Spontaneous
  Country: US (occurrence: US)
  Receive Date: 20130322
  Receipt Date: 20130322
  Transmission Date: 20140127
  Serious: Yes (Death)
  Sender: FDA-Public Use
  Company Number: US-JNJFOC-20130311746

PATIENT
  Sex: Male

DRUGS (21)
  1. ABIRATERONE ACETATE [Suspect]
     Indication: PROSTATE CANCER METASTATIC
     Route: 048
     Dates: start: 20120521, end: 20121116
  2. AMLODIPINE [Concomitant]
     Indication: HYPERTENSION
     Route: 048
     Dates: start: 200403
  3. SERTRALINE [Concomitant]
     Indication: DEPRESSION
     Route: 048
     Dates: start: 200901
  4. ATENOLOL [Concomitant]
     Indication: HYPERTENSION
     Route: 048
     Dates: start: 200412
  5. ZOMETA [Concomitant]
     Indication: OSTEOPOROSIS PROPHYLAXIS
     Route: 042
     Dates: start: 200912
  6. CINNAMON [Concomitant]
     Indication: MEDICAL DIET
     Route: 048
     Dates: start: 200908
  7. VITAMIN D [Concomitant]
     Indication: MEDICAL DIET
     Route: 048
     Dates: start: 200001
  8. OMEGA 3 [Concomitant]
     Indication: MEDICAL DIET
     Route: 048
     Dates: start: 200001
  9. QUERCETIN [Concomitant]
     Indication: MEDICAL DIET
     Route: 048
     Dates: start: 200001
  10. VITAMIN C [Concomitant]
     Indication: MEDICAL DIET
     Route: 048
     Dates: start: 200001
  11. Q10 [Concomitant]
     Indication: MEDICAL DIET
     Route: 048
     Dates: start: 200001
  12. MULTIVITAMINS [Concomitant]
     Indication: MEDICAL DIET
     Route: 048
     Dates: start: 200001
  13. SELENIUM [Concomitant]
     Indication: MEDICAL DIET
     Route: 048
     Dates: start: 200001
  14. ZOLOFT [Concomitant]
     Indication: DEPRESSION
     Route: 048
     Dates: start: 201001
  15. ZOLADEX [Concomitant]
     Indication: HORMONE THERAPY
     Route: 030
     Dates: start: 2006
  16. UNSPECIFIED NSAIDS [Concomitant]
     Indication: HIP FRACTURE
     Route: 048
     Dates: start: 20100305
  17. PERCOCET [Concomitant]
     Indication: GROIN PAIN
     Route: 048
     Dates: start: 20100816
  18. ALLOPURINOL [Concomitant]
     Indication: NEPHROLITHIASIS
     Route: 048
     Dates: start: 201008
  19. PREDNISONE [Concomitant]
     Indication: PROSTATE CANCER METASTATIC
     Route: 048
     Dates: start: 20100106
  20. OXYCODONE [Concomitant]
     Indication: CANCER PAIN
     Route: 048
     Dates: start: 20121024
  21. XTANDI [Concomitant]
     Indication: PROSTATE CANCER
     Route: 048
     Dates: start: 20121204

REACTIONS (1)
  - Death [Fatal]
